FAERS Safety Report 10949019 (Version 2)
Quarter: 2015Q2

REPORT INFORMATION
  Report Type: Spontaneous
  Country: US (occurrence: US)
  Receive Date: 20150324
  Receipt Date: 20150409
  Transmission Date: 20150821
  Serious: No
  Sender: FDA-Public Use
  Company Number: US-PFIZER INC-2015096657

PATIENT
  Age: 71 Year
  Sex: Female

DRUGS (1)
  1. SUTENT [Suspect]
     Active Substance: SUNITINIB MALATE
     Indication: RENAL CANCER
     Dosage: 12.5MG, 2 CAPSULES FIRST DAY AND THREE CAPSULES NEXT DAY FOR TWO WEEKS/ONE WEEK OFF
     Dates: start: 20141114, end: 20150305

REACTIONS (5)
  - Feeling abnormal [Unknown]
  - Disease progression [Unknown]
  - Hypotension [Unknown]
  - Renal cancer [Unknown]
  - Dyspnoea [Unknown]
